FAERS Safety Report 24806014 (Version 1)
Quarter: 2025Q1

REPORT INFORMATION
  Report Type: Spontaneous
  Country: US (occurrence: US)
  Receive Date: 20250103
  Receipt Date: 20250103
  Transmission Date: 20250409
  Serious: No
  Sender: PFIZER
  Company Number: US-PFIZER INC-202400334682

PATIENT
  Age: 57 Year
  Sex: Female
  Weight: 47.6 kg

DRUGS (3)
  1. AZITHROMYCIN [Suspect]
     Active Substance: AZITHROMYCIN
  2. BACLOFEN [Concomitant]
     Active Substance: BACLOFEN
     Indication: Pain
     Dosage: 10 MG, 3X/DAY
  3. VALIUM [Concomitant]
     Active Substance: DIAZEPAM
     Indication: Pain
     Dosage: 10 MG, 3X/DAY

REACTIONS (3)
  - Dyspnoea [Unknown]
  - Diarrhoea [Unknown]
  - Urticaria [Unknown]
